FAERS Safety Report 12015033 (Version 1)
Quarter: 2016Q1

REPORT INFORMATION
  Report Type: Spontaneous
  Country: US (occurrence: US)
  Receive Date: 20160205
  Receipt Date: 20160205
  Transmission Date: 20160526
  Serious: No
  Sender: FDA-Public Use
  Company Number: US-AMGEN-USASP2015016588

PATIENT

DRUGS (6)
  1. HERCEPTIN [Concomitant]
     Active Substance: TRASTUZUMAB
     Dosage: 6 CYCLES @ 3 WEEKS
     Dates: start: 20140809
  2. CARBOPLATIN. [Concomitant]
     Active Substance: CARBOPLATIN
     Dosage: 6 CYCLES @ 3 WEEKS
     Dates: start: 20140809
  3. NEULASTA [Suspect]
     Active Substance: PEGFILGRASTIM
     Indication: PRODUCT USED FOR UNKNOWN INDICATION
     Dosage: 6 CYCLES @ 3 WEEKS
     Route: 065
     Dates: start: 20140809
  4. TAXOTERE [Concomitant]
     Active Substance: DOCETAXEL
     Dosage: 6 CYCLES @ 3 WEEKS
     Dates: start: 20140809
  5. PERJETA [Concomitant]
     Active Substance: PERTUZUMAB
     Dosage: 6 CYCLES @ 3 WEEKS
     Dates: start: 20140809
  6. TAMOXIFEN [Concomitant]
     Active Substance: TAMOXIFEN
     Dosage: UNK
     Dates: start: 20150130

REACTIONS (11)
  - Surgery [Unknown]
  - Decreased appetite [Unknown]
  - Eating disorder [Unknown]
  - Seroma [Unknown]
  - Fatigue [Unknown]
  - Neuropathy peripheral [Unknown]
  - Bone pain [Unknown]
  - Nausea [Unknown]
  - Breast conserving surgery [Unknown]
  - Biopsy [Unknown]
  - Haematoma [Unknown]

NARRATIVE: CASE EVENT DATE: 2014
